FAERS Safety Report 12994604 (Version 5)
Quarter: 2021Q3

REPORT INFORMATION
  Report Type: Spontaneous
  Country: US (occurrence: US)
  Receive Date: 20161202
  Receipt Date: 20210719
  Transmission Date: 20211014
  Serious: No
  Sender: FDA-Public Use
  Company Number: US-TAKEDA-2016TUS021626

PATIENT
  Age: 67 Year
  Sex: Female
  Weight: 73.48 kg

DRUGS (8)
  1. SUCRAFATE [Suspect]
     Active Substance: SUCRALFATE
     Indication: ULCER
  2. DEXILANT [Suspect]
     Active Substance: DEXLANSOPRAZOLE
     Indication: ULCER
     Dosage: 60 MG, QD
     Route: 048
  3. SUCRAFATE [Suspect]
     Active Substance: SUCRALFATE
     Indication: GASTROOESOPHAGEAL REFLUX DISEASE
     Dosage: UNK, TID
     Route: 048
     Dates: start: 20170124, end: 20170124
  4. VALIUM [Concomitant]
     Active Substance: DIAZEPAM
     Indication: ANXIETY
     Dosage: 10 MILLIGRAM
     Route: 065
  5. LUNESTA [Concomitant]
     Active Substance: ESZOPICLONE
     Indication: SLEEP DISORDER
     Dosage: UNK
  6. DEXILANT [Suspect]
     Active Substance: DEXLANSOPRAZOLE
     Indication: GASTROOESOPHAGEAL REFLUX DISEASE
     Dosage: 60 MG, BID
     Route: 048
     Dates: start: 20160318, end: 201611
  7. EDARBI [Suspect]
     Active Substance: AZILSARTAN KAMEDOXOMIL
     Indication: DIABETES MELLITUS
     Dosage: 20 MILLIGRAM, QD
     Route: 065
  8. METFORMIN [Suspect]
     Active Substance: METFORMIN HYDROCHLORIDE
     Indication: HYPERTENSION
     Dosage: 500 MILLIGRAM, BID
     Route: 065

REACTIONS (18)
  - Pain in jaw [Unknown]
  - Abdominal pain upper [Unknown]
  - Non-cardiac chest pain [Not Recovered/Not Resolved]
  - Blood cholesterol increased [Unknown]
  - Skin discolouration [Not Recovered/Not Resolved]
  - Intentional product use issue [Not Recovered/Not Resolved]
  - Toothache [Unknown]
  - Malaise [Not Recovered/Not Resolved]
  - Weight increased [Recovered/Resolved]
  - Diarrhoea [Not Recovered/Not Resolved]
  - Pharyngeal ulceration [Not Recovered/Not Resolved]
  - Confusional state [Recovered/Resolved]
  - Pruritus [Unknown]
  - Product dose omission issue [Not Recovered/Not Resolved]
  - Joint swelling [Not Recovered/Not Resolved]
  - Vomiting [Not Recovered/Not Resolved]
  - Rash [Unknown]
  - Blood glucose increased [Unknown]

NARRATIVE: CASE EVENT DATE: 2016
